FAERS Safety Report 7238449-4 (Version None)
Quarter: 2011Q1

REPORT INFORMATION
  Report Type: 
  Country: None (occurrence: None)
  Receive Date: 20110121
  Receipt Date: 20110114
  Transmission Date: 20110831
  Serious: Yes (Hospitalization)
  Sender: FDA-Public Use
  Company Number: US-US-EMD SERONO, INC.-7035542

PATIENT
  Sex: Female

DRUGS (3)
  1. REBIF [Suspect]
     Route: 058
     Dates: start: 20100101
  2. REBIF [Suspect]
     Indication: MULTIPLE SCLEROSIS
     Route: 058
     Dates: start: 20051206, end: 20100801
  3. UNSPECIFIED MEDICATIONS [Concomitant]

REACTIONS (6)
  - UTERINE PROLAPSE [None]
  - INFLUENZA LIKE ILLNESS [None]
  - PARAESTHESIA [None]
  - BLADDER PROLAPSE [None]
  - PRURITUS [None]
  - INJECTION SITE DISCOLOURATION [None]
